FAERS Safety Report 9119856 (Version 3)
Quarter: 2014Q1

REPORT INFORMATION
  Report Type: Spontaneous
  Country: CA (occurrence: CA)
  Receive Date: 20130226
  Receipt Date: 20140227
  Transmission Date: 20141002
  Serious: Yes (Death, Disabling, Other)
  Sender: FDA-Public Use
  Company Number: CA-JNJFOC-20130214035

PATIENT
  Sex: Female
  Weight: 54.43 kg

DRUGS (4)
  1. TRAMACET [Suspect]
     Indication: PAIN
     Dosage: UNSPECIFIED DOSE ONCE A DAY
     Route: 048
     Dates: start: 2011, end: 2011
  2. TRAMADOL [Suspect]
     Indication: PRODUCT USED FOR UNKNOWN INDICATION
     Route: 048
     Dates: start: 2011, end: 2011
  3. CIPRALEX [Concomitant]
     Route: 065
  4. ACETAMINOPHEN [Concomitant]
     Route: 065

REACTIONS (3)
  - Death [Fatal]
  - Amnesia [Recovered/Resolved]
  - Immobile [Recovered/Resolved]
